FAERS Safety Report 11624590 (Version 1)
Quarter: 2015Q4

REPORT INFORMATION
  Report Type: Report from Study
  Country: BR (occurrence: BR)
  Receive Date: 20151013
  Receipt Date: 20151013
  Transmission Date: 20160304
  Serious: Yes (Other)
  Sender: FDA-Public Use
  Company Number: PHHY2015BR123843

PATIENT
  Sex: Female
  Weight: 62 kg

DRUGS (1)
  1. ONBREZ BREEZHALER [Suspect]
     Active Substance: INDACATEROL
     Indication: BRONCHIAL DISORDER
     Dosage: ONCE AT NIGHT
     Route: 065

REACTIONS (4)
  - Lung neoplasm malignant [Unknown]
  - Alopecia [Unknown]
  - Weight decreased [Unknown]
  - Product use issue [Unknown]
